FAERS Safety Report 9427135 (Version 1)
Quarter: 2013Q3

REPORT INFORMATION
  Report Type: Report from Study
  Country: US (occurrence: US)
  Receive Date: 20130730
  Receipt Date: 20130730
  Transmission Date: 20140515
  Serious: No
  Sender: FDA-Public Use
  Company Number: US-ABBOTT-12P-163-0965571-00

PATIENT
  Age: 80 Year
  Sex: Female
  Weight: 62.65 kg

DRUGS (9)
  1. NIASPAN (COATED) 1000MG [Suspect]
     Indication: BLOOD CHOLESTEROL INCREASED
     Dosage: 1000 MG AT BEDTIME
     Dates: start: 20120727
  2. SYNTHROID [Concomitant]
     Indication: THYROID DISORDER
  3. VITAMIN D [Concomitant]
     Indication: VITAMIN D DEFICIENCY
  4. FLAX SEED OIL [Concomitant]
     Indication: SUPPLEMENTATION THERAPY
  5. MECLEZINE [Concomitant]
     Indication: PRODUCT USED FOR UNKNOWN INDICATION
  6. FIBER CAPSULES [Concomitant]
     Indication: PRODUCT USED FOR UNKNOWN INDICATION
  7. LOVAZA [Concomitant]
     Indication: BLOOD CHOLESTEROL INCREASED
  8. ASPIRIN [Concomitant]
     Indication: CARDIAC DISORDER
  9. ALLEGRA [Concomitant]
     Indication: HYPERSENSITIVITY

REACTIONS (1)
  - Pruritus generalised [Not Recovered/Not Resolved]
